FAERS Safety Report 5391399-0 (Version None)
Quarter: 2007Q3

REPORT INFORMATION
  Report Type: 
  Country: None (occurrence: None)
  Receive Date: 20070719
  Receipt Date: 20070710
  Transmission Date: 20080115
  Serious: Yes (Other)
  Sender: FDA-Public Use
  Company Number: NL-MERCK-0707NLD00009

PATIENT
  Age: 51 Year
  Sex: Female

DRUGS (6)
  1. SINGULAIR [Suspect]
     Indication: ASTHMA
     Route: 048
     Dates: start: 20070613, end: 20070623
  2. FLUTICASONE PROPIONATE AND SALMETEROL XINAFOATE [Concomitant]
     Dates: start: 20070201
  3. CILAZAPRIL [Concomitant]
     Route: 048
     Dates: start: 19980101
  4. IPRATROPIUM BROMIDE [Concomitant]
     Dates: start: 19950101
  5. ALBUTEROL SULFATE [Concomitant]
     Dates: start: 19950101
  6. PAROXETINE HYDROCHLORIDE [Concomitant]
     Route: 048
     Dates: start: 20000101

REACTIONS (2)
  - HAEMORRHAGE [None]
  - HEADACHE [None]
